FAERS Safety Report 12560845 (Version 1)
Quarter: 2016Q3

REPORT INFORMATION
  Report Type: Spontaneous
  Country: PL (occurrence: PL)
  Receive Date: 20160715
  Receipt Date: 20160715
  Transmission Date: 20161109
  Serious: Yes (Other)
  Sender: FDA-Public Use
  Company Number: PL-ACTAVIS-2015-10997

PATIENT
  Age: 43 Year
  Sex: Male

DRUGS (3)
  1. ACITRETIN (UNKNOWN) [Suspect]
     Active Substance: ACITRETIN
     Dosage: 20 MG, DAILY
     Route: 065
  2. PREDNISOLONE. [Concomitant]
     Active Substance: PREDNISOLONE
     Indication: PITYRIASIS RUBRA PILARIS
     Dosage: 40 MG, DAILY
     Route: 065
  3. ACITRETIN (UNKNOWN) [Suspect]
     Active Substance: ACITRETIN
     Indication: PITYRIASIS RUBRA PILARIS
     Dosage: 25 MG, BID
     Route: 065

REACTIONS (5)
  - Arthralgia [Unknown]
  - Mucosal dryness [Unknown]
  - Dry skin [Unknown]
  - Myalgia [Unknown]
  - Depressed mood [Unknown]
